FAERS Safety Report 4212022 (Version 5)
Quarter: 2020Q3

REPORT INFORMATION
  Report Type: Report from Study
  Country: FR (occurrence: FR)
  Receive Date: 20040921
  Receipt Date: 20060403
  Transmission Date: 20201104
  Serious: Yes (Death)
  Sender: FDA-Public Use
  Company Number: FR-JNJFOC-20040903271

PATIENT
  Age: 73 Year
  Sex: Female

DRUGS (5)
  1. REOPRO [Suspect]
     Active Substance: ABCIXIMAB
     Route: 042
  2. ALGINIC ACID [Concomitant]
     Active Substance: ALGINIC ACID
     Route: 042
  3. TOPAL [Concomitant]
     Route: 042
  4. MAGNESIUM CARBONATE [Concomitant]
     Active Substance: MAGNESIUM CARBONATE
     Route: 042
  5. REOPRO [Suspect]
     Active Substance: ABCIXIMAB
     Route: 042

REACTIONS (1)
  - Haemorrhagic transformation stroke [Fatal]

NARRATIVE: CASE EVENT DATE: 20040909
